FAERS Safety Report 6418902-3 (Version None)
Quarter: 2009Q4

REPORT INFORMATION
  Report Type: 
  Country: None (occurrence: None)
  Receive Date: 20091028
  Receipt Date: 20091028
  Transmission Date: 20100525
  Serious: Yes (Hospitalization)
  Sender: FDA-Public Use
  Company Number: None

PATIENT
  Age: 61 Year
  Sex: Female
  Weight: 68.901 kg

DRUGS (2)
  1. DASATINIB [Suspect]
     Indication: POLYCYTHAEMIA VERA
     Dosage: 100 DAILY ___
     Dates: start: 20070606
  2. DASATINIB [Suspect]
     Indication: POLYCYTHAEMIA VERA
     Dosage: 100 DAILY ___
     Dates: start: 20090708

REACTIONS (1)
  - HAEMATOMA [None]
